FAERS Safety Report 8737680 (Version 2)
Quarter: 2013Q4

REPORT INFORMATION
  Report Type: Spontaneous
  Country: US (occurrence: US)
  Receive Date: 20120822
  Receipt Date: 20131101
  Transmission Date: 20140711
  Serious: No
  Sender: FDA-Public Use
  Company Number: US-009507513-1207USA008599

PATIENT
  Sex: Male

DRUGS (2)
  1. ZETIA [Suspect]
     Indication: LIPIDS
     Dosage: 0.5 OF A TABLET, QD
     Route: 048
     Dates: end: 2012
  2. METFORMIN [Concomitant]

REACTIONS (2)
  - Myopathy [Recovering/Resolving]
  - Wrong technique in drug usage process [Unknown]
